FAERS Safety Report 12168238 (Version 1)
Quarter: 2016Q1

REPORT INFORMATION
  Report Type: Spontaneous
  Country: US (occurrence: None)
  Receive Date: 20160309
  Receipt Date: 20160309
  Transmission Date: 20160526
  Serious: Yes (Other)
  Sender: FDA-Public Use
  Company Number: None

PATIENT
  Age: 81 Year
  Sex: Female

DRUGS (1)
  1. FLUDROCORTISONE 0.1MG TAB 0.1MG IMPAX GENERICS [Suspect]
     Active Substance: FLUDROCORTISONE
     Indication: SWELLING
     Route: 048
     Dates: start: 20160302

REACTIONS (4)
  - Vulvovaginal pain [None]
  - Proctalgia [None]
  - Bladder pain [None]
  - Abdominal pain [None]

NARRATIVE: CASE EVENT DATE: 20160302
